FAERS Safety Report 12634544 (Version 6)
Quarter: 2017Q3

REPORT INFORMATION
  Report Type: Spontaneous
  Country: GR (occurrence: GR)
  Receive Date: 20160809
  Receipt Date: 20170809
  Transmission Date: 20171127
  Serious: Yes (Death, Other)
  Sender: FDA-Public Use
  Company Number: GR-CELGENEUS-GRC-2015062410

PATIENT

DRUGS (3)
  1. DEXAMETHASONE. [Concomitant]
     Active Substance: DEXAMETHASONE
     Indication: PLASMA CELL MYELOMA
     Dosage: 40 MILLIGRAM
     Route: 065
  2. CARFILZOMIB [Concomitant]
     Active Substance: CARFILZOMIB
     Indication: PLASMA CELL MYELOMA
     Dosage: (20 MG/M2 DAYS 1 AND 2 OF CYCLE 1];?27 MG/M2 THERE AFTER)
     Route: 041
  3. REVLIMID [Suspect]
     Active Substance: LENALIDOMIDE
     Indication: PLASMA CELL MYELOMA
     Dosage: 25 MILLIGRAM
     Route: 048

REACTIONS (76)
  - Pneumonia [Fatal]
  - Febrile neutropenia [Unknown]
  - Cardiopulmonary failure [Unknown]
  - Hypertension [Unknown]
  - Pyrexia [Unknown]
  - Back pain [Unknown]
  - Pain in extremity [Unknown]
  - Platelet count decreased [Unknown]
  - Hepatic congestion [Unknown]
  - Coronary artery disease [Unknown]
  - Cardiac stress test abnormal [Unknown]
  - Azotaemia [Unknown]
  - Pulmonary embolism [Fatal]
  - Asthenia [Unknown]
  - Acute pulmonary oedema [Unknown]
  - Right ventricular failure [Unknown]
  - Blood creatinine increased [Unknown]
  - Angina unstable [Unknown]
  - Neutropenia [Unknown]
  - Cardiomyopathy [Unknown]
  - Muscle spasms [Unknown]
  - Nasopharyngitis [Unknown]
  - Hypocalcaemia [Unknown]
  - Decreased appetite [Unknown]
  - Troponin T increased [Unknown]
  - Nephropathy toxic [Unknown]
  - Cardiac failure [Fatal]
  - Anaemia [Unknown]
  - Hyperglycaemia [Unknown]
  - Coronary artery stenosis [Unknown]
  - Renal failure [Fatal]
  - Renal impairment [Unknown]
  - Hypophosphataemia [Unknown]
  - Thrombocytopenia [Unknown]
  - Plasma cell myeloma recurrent [Unknown]
  - Nausea [Unknown]
  - Vomiting [Unknown]
  - Lymphopenia [Unknown]
  - Myocardial infarction [Fatal]
  - Respiratory tract infection [Unknown]
  - Coronary artery occlusion [Unknown]
  - Acute coronary syndrome [Unknown]
  - Oliguria [Unknown]
  - Acute kidney injury [Unknown]
  - Diarrhoea [Unknown]
  - Syncope [Unknown]
  - Cardiac failure acute [Unknown]
  - Prerenal failure [Unknown]
  - Dyspnoea [Unknown]
  - Neuropathy peripheral [Unknown]
  - Oedema peripheral [Unknown]
  - Bronchitis [Unknown]
  - Bone pain [Unknown]
  - Troponin increased [Unknown]
  - Electrocardiogram T wave abnormal [Unknown]
  - Death [Fatal]
  - Fatigue [Unknown]
  - Leukopenia [Unknown]
  - Rash [Unknown]
  - Cataract [Unknown]
  - Cardiac failure congestive [Unknown]
  - Angina pectoris [Unknown]
  - Hypokalaemia [Unknown]
  - Upper respiratory tract infection [Unknown]
  - Cough [Unknown]
  - Constipation [Unknown]
  - Insomnia [Unknown]
  - Arthralgia [Unknown]
  - Headache [Unknown]
  - Electrocardiogram ST-T segment abnormal [Unknown]
  - Myocardial ischaemia [Unknown]
  - Acute myocardial infarction [Unknown]
  - Anuria [Unknown]
  - Plasma cell myeloma [Unknown]
  - Dizziness [Unknown]
  - Neutrophil count decreased [Unknown]
